FAERS Safety Report 7603268-3 (Version None)
Quarter: 2011Q3

REPORT INFORMATION
  Report Type: 
  Country: None (occurrence: None)
  Receive Date: 20110712
  Receipt Date: 20110707
  Transmission Date: 20111222
  Serious: No
  Sender: FDA-Public Use
  Company Number: KR-JNJFOC-20110505339

PATIENT
  Age: 14 Year
  Sex: Male

DRUGS (1)
  1. TOPAMAX [Suspect]
     Indication: EPILEPSY
     Route: 048
     Dates: end: 20110503

REACTIONS (1)
  - COLOUR BLINDNESS [None]
